FAERS Safety Report 5268975-9 (Version None)
Quarter: 2007Q1

REPORT INFORMATION
  Report Type: 
  Country: None (occurrence: None)
  Receive Date: 20070319
  Receipt Date: 20070309
  Transmission Date: 20070707
  Serious: Yes (Hospitalization)
  Sender: FDA-Public Use
  Company Number: FR-BRISTOL-MYERS SQUIBB COMPANY-13718218

PATIENT
  Age: 44 Year
  Sex: Female

DRUGS (5)
  1. ENDOXAN [Suspect]
     Indication: METASTASES TO LIVER
     Route: 042
     Dates: start: 20061012, end: 20061215
  2. FARMORUBICIN [Suspect]
     Indication: METASTASES TO LIVER
     Route: 042
     Dates: start: 20061012, end: 20061215
  3. FLUOROURACIL [Suspect]
     Indication: METASTASES TO LIVER
     Route: 042
     Dates: start: 20061012, end: 20061215
  4. EPOETIN ALFA [Suspect]
     Indication: METASTASES TO LIVER
     Route: 058
     Dates: start: 20061123, end: 20070111
  5. TARDYFERON [Concomitant]
     Dates: start: 20061123, end: 20061222

REACTIONS (1)
  - PHLEBITIS [None]
